FAERS Safety Report 5634177-7 (Version None)
Quarter: 2008Q1

REPORT INFORMATION
  Report Type: 
  Country: None (occurrence: None)
  Receive Date: 20080219
  Receipt Date: 20080207
  Transmission Date: 20080703
  Serious: Yes (Death, Other)
  Sender: FDA-Public Use
  Company Number: 2007-02542

PATIENT
  Age: 60 Year
  Sex: Male
  Weight: 64 kg

DRUGS (12)
  1. VELCADE [Suspect]
     Indication: MULTIPLE MYELOMA
     Dosage: 2.2 MG, INTRAVENOUS
     Route: 042
     Dates: start: 20070709, end: 20070720
  2. ETODOLAC [Suspect]
     Indication: PAIN
     Dosage: 400.00 MG, ORAL
     Route: 048
     Dates: start: 20070610, end: 20070721
  3. PREDNISOLONE [Suspect]
     Dosage: 25.00 MG, ORAL
     Route: 048
  4. TEGRETOL [Concomitant]
  5. MEXITIL [Concomitant]
  6. MAGNESIUM OXIDE (MAGNESIUM OXIDE) [Concomitant]
  7. FAMOTIDINE [Concomitant]
  8. ALLOPURINOL [Concomitant]
  9. FENTANYL [Concomitant]
  10. ANPEC (VERAPAMIL HYDROCHLORIDE) [Concomitant]
  11. RED BLOOD CELLS [Concomitant]
  12. PLASMA [Concomitant]

REACTIONS (4)
  - DISEASE PROGRESSION [None]
  - DIVERTICULUM INTESTINAL HAEMORRHAGIC [None]
  - MELAENA [None]
  - SHOCK HAEMORRHAGIC [None]
